FAERS Safety Report 6795682-3 (Version None)
Quarter: 2010Q2

REPORT INFORMATION
  Report Type: 
  Country: None (occurrence: None)
  Receive Date: 20100520
  Receipt Date: 20090610
  Transmission Date: 20101027
  Serious: Yes (Other)
  Sender: FDA-Public Use
  Company Number: 2009226202

PATIENT
  Age: 58 Year
  Sex: Female

DRUGS (10)
  1. PROVERA [Suspect]
     Indication: HORMONE REPLACEMENT THERAPY
     Dosage: 2.5 MG, UNK
     Dates: start: 19920101, end: 20000101
  2. PREMARIN [Suspect]
     Indication: HORMONE REPLACEMENT THERAPY
     Dosage: 0.625 MG, UNK
     Dates: start: 19920101, end: 20000101
  3. PREMPRO [Suspect]
     Indication: HORMONE REPLACEMENT THERAPY
     Dosage: UNKNOWN
     Dates: end: 20000101
  4. XANAX [Concomitant]
  5. PAXIL [Concomitant]
  6. CAPOTEN [Concomitant]
  7. SEROQUEL [Concomitant]
  8. WELLBUTRIN [Concomitant]
  9. ZOCOR [Concomitant]
  10. LOPRESSOR [Concomitant]

REACTIONS (1)
  - OVARIAN CANCER [None]
